FAERS Safety Report 5397775-4 (Version None)
Quarter: 2007Q3

REPORT INFORMATION
  Report Type: 
  Country: None (occurrence: None)
  Receive Date: 20070726
  Receipt Date: 20070719
  Transmission Date: 20080115
  Serious: Yes (Other)
  Sender: FDA-Public Use
  Company Number: B0480472A

PATIENT
  Age: 36 Year
  Sex: Male

DRUGS (2)
  1. KIVEXA [Suspect]
     Indication: HIV INFECTION
     Route: 048
     Dates: start: 20070704, end: 20070716
  2. STOCRIN [Suspect]
     Indication: HIV INFECTION
     Route: 048
     Dates: start: 20070704, end: 20070716

REACTIONS (4)
  - DRUG HYPERSENSITIVITY [None]
  - HEPATITIS [None]
  - PYREXIA [None]
  - RASH MACULO-PAPULAR [None]
